FAERS Safety Report 5694035-9 (Version None)
Quarter: 2008Q2

REPORT INFORMATION
  Report Type: 
  Country: None (occurrence: None)
  Receive Date: 20080403
  Receipt Date: 20080401
  Transmission Date: 20081010
  Serious: Yes (Hospitalization)
  Sender: FDA-Public Use
  Company Number: US-MERCK-0705USA04135

PATIENT
  Age: 68 Year
  Sex: Female

DRUGS (5)
  1. FOSAMAX [Suspect]
     Indication: OSTEOPOROSIS
     Route: 048
     Dates: start: 20000101, end: 20060101
  2. LIPITOR [Concomitant]
     Indication: BLOOD CHOLESTEROL INCREASED
     Route: 065
     Dates: start: 19930101, end: 20070101
  3. PAXIL [Concomitant]
     Indication: DEPRESSION
     Route: 065
     Dates: start: 19940101, end: 20070101
  4. ADVIL [Concomitant]
     Indication: BACK PAIN
     Route: 065
     Dates: start: 19920101, end: 20070101
  5. AMBIEN [Concomitant]
     Indication: INSOMNIA
     Route: 065
     Dates: start: 19950101, end: 20070101

REACTIONS (6)
  - CARDIAC DISORDER [None]
  - DENTAL CARIES [None]
  - GASTROINTESTINAL INFECTION [None]
  - ORAL INFECTION [None]
  - RESORPTION BONE INCREASED [None]
  - TOOTH LOSS [None]
